FAERS Safety Report 6696951-8 (Version None)
Quarter: 2010Q2

REPORT INFORMATION
  Report Type: 
  Country: None (occurrence: None)
  Receive Date: 20100426
  Receipt Date: 20100416
  Transmission Date: 20101027
  Serious: Yes (Hospitalization)
  Sender: FDA-Public Use
  Company Number: PHHO2009IE15640

PATIENT
  Sex: Female

DRUGS (1)
  1. CGS 20267 T30748+TAB [Suspect]
     Indication: BREAST CANCER
     Dosage: 2.5 MG, QD
     Route: 048
     Dates: start: 20070222, end: 20091207

REACTIONS (13)
  - ABDOMINAL PAIN LOWER [None]
  - ASTHENIA [None]
  - COUGH [None]
  - DIARRHOEA [None]
  - DYSPNOEA [None]
  - MALIGNANT NEOPLASM PROGRESSION [None]
  - METASTASES TO BONE [None]
  - METASTASES TO LUNG [None]
  - NAUSEA [None]
  - PAIN [None]
  - PLEURAL EFFUSION [None]
  - RECTAL HAEMORRHAGE [None]
  - THORACIC CAVITY DRAINAGE [None]
